FAERS Safety Report 9281552 (Version 3)
Quarter: 2013Q2

REPORT INFORMATION
  Report Type: Spontaneous
  Country: CA (occurrence: CA)
  Receive Date: 20130509
  Receipt Date: 20130606
  Transmission Date: 20140414
  Serious: Yes (Hospitalization)
  Sender: FDA-Public Use
  Company Number: CA-ALEXION PHARMACEUTICALS INC.-A201300985

PATIENT
  Age: 32 Year
  Sex: Female
  Weight: 54.4 kg

DRUGS (4)
  1. SOLIRIS 300MG [Suspect]
     Indication: HAEMOLYTIC URAEMIC SYNDROME
     Dosage: 900 MG, QW
     Route: 042
     Dates: start: 20130328, end: 20130419
  2. PREDNISONE [Concomitant]
     Dosage: UNK
  3. ADALAT [Concomitant]
     Dosage: UNK
     Dates: start: 201212
  4. CONTRACEPTIVES NOS [Concomitant]
     Dosage: UNK
     Route: 048

REACTIONS (4)
  - Escherichia sepsis [Recovered/Resolved]
  - Dyspnoea [Recovered/Resolved]
  - Pulmonary oedema [Recovered/Resolved]
  - Pericarditis [Recovered/Resolved]
